FAERS Safety Report 4278726-2 (Version None)
Quarter: 2004Q1

REPORT INFORMATION
  Report Type: 
  Country: None (occurrence: None)
  Receive Date: 20040102
  Receipt Date: 20031106
  Transmission Date: 20041129
  Serious: No
  Sender: FDA-Public Use
  Company Number: BLOC000352

PATIENT
  Age: 30 Year
  Sex: Female

DRUGS (6)
  1. MYOBLOC [Suspect]
     Indication: HEMIPLEGIA
     Dosage: INTRAMUSCULAR
     Route: 030
     Dates: start: 20010908, end: 20010908
  2. BOTOX (BOTULINUM TOXIN TYPE A) [Suspect]
     Dates: start: 20010101, end: 20010101
  3. TAGAMET [Concomitant]
  4. MYSOLINE [Concomitant]
  5. BACLOFEN [Concomitant]
  6. ORTHO-NOVIN 1/50 (NORETHISTERONE) [Concomitant]

REACTIONS (4)
  - DEHYDRATION [None]
  - DRY MOUTH [None]
  - NAUSEA [None]
  - VISION BLURRED [None]
